FAERS Safety Report 6571871-8 (Version None)
Quarter: 2010Q1

REPORT INFORMATION
  Report Type: 
  Country: None (occurrence: None)
  Receive Date: 20100205
  Receipt Date: 20100126
  Transmission Date: 20100710
  Serious: Yes (Death)
  Sender: FDA-Public Use
  Company Number: DE-JNJFOC-20090707287

PATIENT
  Sex: Female

DRUGS (7)
  1. REOPRO [Suspect]
     Indication: ARTERIOGRAM CORONARY
     Route: 016
  2. REOPRO [Suspect]
     Indication: MYOCARDIAL INFARCTION
     Route: 016
  3. REOPRO [Suspect]
     Route: 042
  4. REOPRO [Suspect]
     Route: 042
  5. ASPIRIN [Suspect]
     Indication: MYOCARDIAL INFARCTION
  6. PLAVIX [Suspect]
     Indication: MYOCARDIAL INFARCTION
  7. HEPARIN [Suspect]
     Indication: MYOCARDIAL INFARCTION

REACTIONS (5)
  - INCORRECT ROUTE OF DRUG ADMINISTRATION [None]
  - INJECTION SITE HAEMORRHAGE [None]
  - PHARYNGEAL HAEMORRHAGE [None]
  - SUBARACHNOID HAEMORRHAGE [None]
  - VENTRICULAR FIBRILLATION [None]
